FAERS Safety Report 24788936 (Version 1)
Quarter: 2024Q4

REPORT INFORMATION
  Report Type: Spontaneous
  Country: SE (occurrence: SE)
  Receive Date: 20241230
  Receipt Date: 20241230
  Transmission Date: 20250115
  Serious: Yes (Hospitalization, Other)
  Sender: MERCK
  Company Number: SE-009507513-2412SWE007758

PATIENT
  Sex: Female

DRUGS (7)
  1. PEMBROLIZUMAB [Suspect]
     Active Substance: PEMBROLIZUMAB
     Indication: Endometrial cancer metastatic
     Dosage: UNK
     Dates: start: 20230919, end: 20230919
  2. PEMBROLIZUMAB [Suspect]
     Active Substance: PEMBROLIZUMAB
     Indication: Metastases to liver
     Dosage: UNK
     Dates: start: 20231019, end: 20231019
  3. PEMBROLIZUMAB [Suspect]
     Active Substance: PEMBROLIZUMAB
     Indication: Metastases to peritoneum
     Dosage: UNK
     Dates: start: 20231119, end: 20231119
  4. PEMBROLIZUMAB [Suspect]
     Active Substance: PEMBROLIZUMAB
     Dosage: UNK
     Dates: start: 20231204, end: 20231204
  5. LENVATINIB MESYLATE [Suspect]
     Active Substance: LENVATINIB MESYLATE
     Indication: Endometrial cancer metastatic
     Dosage: UNK
     Dates: start: 20230919, end: 20230930
  6. LENVATINIB MESYLATE [Suspect]
     Active Substance: LENVATINIB MESYLATE
     Indication: Metastases to liver
     Dosage: 20 MILLIGRAM
     Dates: start: 20231009, end: 20231010
  7. LENVATINIB MESYLATE [Suspect]
     Active Substance: LENVATINIB MESYLATE
     Indication: Metastases to peritoneum
     Dosage: 20 MILLIGRAM
     Dates: start: 20231013, end: 20231219

REACTIONS (12)
  - Pyrexia [Not Recovered/Not Resolved]
  - Rash [Recovered/Resolved]
  - Arthralgia [Unknown]
  - Chills [Unknown]
  - Wound infection staphylococcal [Unknown]
  - Pyoderma gangrenosum [Unknown]
  - Hypotonia [Unknown]
  - Stoma site wound [Unknown]
  - Wound infection bacterial [Unknown]
  - Skin toxicity [Unknown]
  - Wound dehiscence [Unknown]
  - Product use in unapproved indication [Unknown]

NARRATIVE: CASE EVENT DATE: 20230919
